FAERS Safety Report 16744425 (Version 2)
Quarter: 2019Q3

REPORT INFORMATION
  Report Type: Spontaneous
  Country: BE (occurrence: BE)
  Receive Date: 20190827
  Receipt Date: 20190905
  Transmission Date: 20191005
  Serious: Yes (Hospitalization)
  Sender: FDA-Public Use
  Company Number: BE-B.I. PHARMACEUTICALS,INC./RIDGEFIELD-2019-BI-034657

PATIENT
  Age: 74 Year
  Sex: Male
  Weight: 74.6 kg

DRUGS (4)
  1. RAMIPRIL. [Concomitant]
     Active Substance: RAMIPRIL
     Indication: HYPERTENSION
     Route: 048
  2. JARDIANCE [Suspect]
     Active Substance: EMPAGLIFLOZIN
     Indication: TYPE 2 DIABETES MELLITUS
     Route: 048
     Dates: start: 2016, end: 20190712
  3. ATORVASTATINE [Concomitant]
     Active Substance: ATORVASTATIN
     Indication: DRUG THERAPY
     Route: 048
  4. ASPIRINE [Concomitant]
     Active Substance: ASPIRIN
     Indication: PRODUCT USED FOR UNKNOWN INDICATION
     Route: 048

REACTIONS (4)
  - Lung neoplasm [Unknown]
  - Gastrointestinal haemorrhage [Unknown]
  - Gastric ulcer [Unknown]
  - Ketoacidosis [Recovered/Resolved]

NARRATIVE: CASE EVENT DATE: 20190712
